FAERS Safety Report 13295791 (Version 1)
Quarter: 2017Q1

REPORT INFORMATION
  Report Type: Spontaneous
  Country: US (occurrence: US)
  Receive Date: 20170303
  Receipt Date: 20170303
  Transmission Date: 20170428
  Serious: Yes (Hospitalization)
  Sender: FDA-Public Use
  Company Number: US-IMPAX LABORATORIES, INC-2017-IPXL-00006

PATIENT
  Age: 15 Year
  Sex: Female

DRUGS (4)
  1. PREDNISONE. [Concomitant]
     Active Substance: PREDNISONE
     Indication: GLOMERULONEPHRITIS RAPIDLY PROGRESSIVE
     Dosage: UNK
     Route: 065
  2. CHLOROQUINE PHOSPHATE. [Suspect]
     Active Substance: CHLOROQUINE PHOSPHATE
     Dosage: UNK; RESUMED
  3. CHLOROQUINE PHOSPHATE. [Suspect]
     Active Substance: CHLOROQUINE PHOSPHATE
     Indication: WRONG DRUG ADMINISTERED
     Dosage: UNK
     Route: 065
  4. PREDNISONE. [Concomitant]
     Active Substance: PREDNISONE
     Dosage: UNK; RESUMED

REACTIONS (5)
  - Catatonia [Recovered/Resolved]
  - Drug screen false positive [Unknown]
  - Substance-induced psychotic disorder [Recovered/Resolved]
  - Accidental overdose [Recovered/Resolved]
  - Wrong drug administered [Recovered/Resolved]
